FAERS Safety Report 7687091-X (Version None)
Quarter: 2011Q3

REPORT INFORMATION
  Report Type: 
  Country: None (occurrence: None)
  Receive Date: 20110816
  Receipt Date: 20110804
  Transmission Date: 20111222
  Serious: Yes (Hospitalization)
  Sender: FDA-Public Use
  Company Number: IL-SANOFI-AVENTIS-2011SA044081

PATIENT
  Age: 90 Year
  Sex: Male
  Weight: 77 kg

DRUGS (13)
  1. DRONEDARONE HCL [Suspect]
     Indication: ATRIAL FIBRILLATION
     Route: 048
     Dates: start: 20110131, end: 20110306
  2. DOXAZOSIN MESYLATE [Concomitant]
     Route: 048
  3. MICROPIRIN [Concomitant]
  4. ISOSORBIDE DINITRATE [Concomitant]
  5. COUMADIN [Concomitant]
  6. ALL OTHER THERAPEUTIC PRODUCTS [Concomitant]
     Dates: start: 20110302
  7. LEVOTHYROXINE SODIUM [Concomitant]
     Route: 048
  8. FUSID [Concomitant]
     Indication: HYPERTENSION
  9. SIMAVASTATIN [Concomitant]
  10. REPAGLINIDE [Concomitant]
  11. TRIBEMIN [Concomitant]
     Dosage: DOSE:1 UNIT(S)
     Route: 048
  12. BISOPROLOL FUMARATE [Concomitant]
     Indication: HEART RATE
     Route: 048
  13. OMEPRADEX [Concomitant]
     Route: 048

REACTIONS (1)
  - CARDIAC FAILURE [None]
